FAERS Safety Report 7938335-8 (Version None)
Quarter: 2011Q4

REPORT INFORMATION
  Report Type: 
  Country: None (occurrence: None)
  Receive Date: 20111123
  Receipt Date: 20111118
  Transmission Date: 20120403
  Serious: Yes (Hospitalization, Other)
  Sender: FDA-Public Use
  Company Number: GB-PFIZER INC-GB-WYE-H00574407

PATIENT
  Age: 76 Year
  Sex: Female

DRUGS (4)
  1. IBUPROFEN [Suspect]
     Indication: OSTEOARTHRITIS
     Route: 048
  2. CALCIUM CARBONATE [Suspect]
     Indication: DYSPEPSIA
     Dosage: 5.5 G, 1X/DAY
     Route: 048
  3. CALCIUM CHANNEL BLOCKERS [Concomitant]
     Indication: HYPERTENSION
     Route: 065
  4. SALBUTAMOL [Concomitant]
     Route: 055

REACTIONS (6)
  - MILK-ALKALI SYNDROME [None]
  - NOCTURIA [None]
  - CONSTIPATION [None]
  - DIARRHOEA [None]
  - POLYDIPSIA [None]
  - POLYURIA [None]
